FAERS Safety Report 9272496 (Version 2)
Quarter: 2013Q2

REPORT INFORMATION
  Report Type: Spontaneous
  Country: US (occurrence: US)
  Receive Date: 20130506
  Receipt Date: 20130603
  Transmission Date: 20140414
  Serious: Yes (Death)
  Sender: FDA-Public Use
  Company Number: US-GLAXOSMITHKLINE-A1022400A

PATIENT
  Age: 61 Year
  Sex: Male

DRUGS (8)
  1. VOTRIENT [Suspect]
     Indication: RENAL CANCER
     Dosage: 800MG PER DAY
     Route: 048
     Dates: start: 20120912, end: 20130402
  2. MORPHINE [Concomitant]
  3. ADVIL PM [Concomitant]
  4. CENTRUM SILVER [Concomitant]
  5. FENOFIBRATE [Concomitant]
  6. FLOMAX [Concomitant]
  7. OMEPRAZOLE [Concomitant]
  8. PROCHLORPERAZINE [Concomitant]

REACTIONS (1)
  - Death [Fatal]
